FAERS Safety Report 5110039-9 (Version None)
Quarter: 2006Q3

REPORT INFORMATION
  Report Type: 
  Country: None (occurrence: None)
  Receive Date: 20060921
  Receipt Date: 20060907
  Transmission Date: 20061208
  Serious: Yes (Hospitalization)
  Sender: FDA-Public Use
  Company Number: US-AMGEN-US192699

PATIENT
  Sex: Male

DRUGS (3)
  1. EPOGEN [Suspect]
     Indication: DIALYSIS
     Route: 065
     Dates: start: 20010101
  2. CYMBALTA [Concomitant]
     Route: 065
  3. LYRICA [Concomitant]
     Route: 065

REACTIONS (2)
  - HAEMOGLOBIN DECREASED [None]
  - MARROW HYPERPLASIA [None]
